FAERS Safety Report 10206294 (Version 1)
Quarter: 2014Q2

REPORT INFORMATION
  Report Type: Spontaneous
  Country: US (occurrence: None)
  Receive Date: 20140527
  Receipt Date: 20140527
  Transmission Date: 20141212
  Serious: Yes (Disabling)
  Sender: FDA-Public Use
  Company Number: None

PATIENT
  Age: 31 Year
  Sex: Female
  Weight: 86.18 kg

DRUGS (3)
  1. BUPROPRION XL [Suspect]
     Indication: DEPRESSION
     Dosage: 1 PILL IN THE MORNIN G?ONCE DAILY?TAKEN BY MOUTH
     Route: 048
  2. VITAMIN C [Concomitant]
  3. MULTIVITAMIN [Concomitant]

REACTIONS (5)
  - Constipation [None]
  - Dysgeusia [None]
  - Sexual dysfunction [None]
  - Anorgasmia [None]
  - Product quality issue [None]
